FAERS Safety Report 5592761-3 (Version None)
Quarter: 2008Q1

REPORT INFORMATION
  Report Type: 
  Country: None (occurrence: None)
  Receive Date: 20080116
  Receipt Date: 20080110
  Transmission Date: 20080703
  Serious: Yes (Hospitalization)
  Sender: FDA-Public Use
  Company Number: FR-BAYER-200810630GPV

PATIENT
  Age: 44 Year
  Sex: Female

DRUGS (3)
  1. BETASERON [Suspect]
     Indication: MULTIPLE SCLEROSIS
     Route: 058
     Dates: start: 19900101
  2. ESCITALOPRAM [Suspect]
     Indication: DEPRESSION
     Route: 048
     Dates: end: 20070923
  3. RELPAX [Suspect]
     Indication: MIGRAINE
     Route: 048
     Dates: start: 20070919, end: 20070922

REACTIONS (4)
  - ABDOMINAL PAIN [None]
  - DIARRHOEA [None]
  - INTESTINAL ISCHAEMIA [None]
  - VOMITING [None]
